FAERS Safety Report 4723660-4 (Version None)
Quarter: 2005Q3

REPORT INFORMATION
  Report Type: 
  Country: None (occurrence: None)
  Receive Date: 20050722
  Receipt Date: 20050711
  Transmission Date: 20060218
  Serious: Yes (Death, Life-Threatening, Other)
  Sender: FDA-Public Use
  Company Number: 03-09-1238

PATIENT
  Age: 53 Year
  Sex: Male
  Weight: 113.8529 kg

DRUGS (10)
  1. CLOZAPINE [Suspect]
     Indication: SCHIZOPHRENIA
     Dosage: 400MG QD ORAL
     Route: 048
     Dates: start: 19980401, end: 20030901
  2. ACCUPRIL [Suspect]
     Indication: HYPERTENSION
     Dosage: 20MG QD
     Dates: start: 20030821
  3. HYDROCHLOROTHIAZIDE [Suspect]
     Indication: HYPERTENSION
     Dosage: 12.5MG QD
     Dates: start: 20030828
  4. DEPAKOTE [Concomitant]
  5. PIROXICAM [Concomitant]
  6. OXYBUTYNIN [Concomitant]
  7. BISACODYL [Concomitant]
  8. BACLOFEN [Concomitant]
  9. MIRALAX [Concomitant]
  10. LACTULOSE [Concomitant]

REACTIONS (5)
  - ANTIPSYCHOTIC DRUG LEVEL ABOVE THERAPEUTIC [None]
  - BLOOD CAFFEINE [None]
  - CONVULSION [None]
  - DRUG INTERACTION [None]
  - DRUG TOXICITY [None]
